FAERS Safety Report 7146494-2 (Version None)
Quarter: 2010Q4

REPORT INFORMATION
  Report Type: 
  Country: None (occurrence: None)
  Receive Date: 20101208
  Receipt Date: 20101123
  Transmission Date: 20110411
  Serious: No
  Sender: FDA-Public Use
  Company Number: US-B.I. PHARMACEUTICALS,INC./RIDGEFIELD-2010-BP-13350BP

PATIENT
  Age: 77 Year
  Sex: Female

DRUGS (6)
  1. PRADAXA [Suspect]
     Indication: ATRIAL FIBRILLATION
     Dosage: 150 MG
     Route: 048
     Dates: start: 20101123
  2. TOPROL-XL [Concomitant]
     Indication: HYPERTENSION
  3. CELEBREX [Concomitant]
     Indication: OSTEOARTHRITIS
  4. OXYBUTIN [Concomitant]
     Indication: BLADDER DISORDER
  5. ANXIETY MEDICINE [Concomitant]
     Indication: ANXIETY
  6. OXYCODONE HCL [Concomitant]
     Indication: MUSCULOSKELETAL CHEST PAIN

REACTIONS (1)
  - DYSPNOEA [None]
